FAERS Safety Report 24100336 (Version 2)
Quarter: 2025Q3

REPORT INFORMATION
  Report Type: Spontaneous
  Country: US (occurrence: US)
  Receive Date: 20240717
  Receipt Date: 20250715
  Transmission Date: 20251020
  Serious: No
  Sender: NOVO NORDISK
  Company Number: US-NOVOPROD-1202695

PATIENT
  Sex: Female

DRUGS (3)
  1. OZEMPIC [Suspect]
     Active Substance: SEMAGLUTIDE
     Indication: Product used for unknown indication
     Dosage: 2 MG, QW
     Route: 058
  2. OZEMPIC [Suspect]
     Active Substance: SEMAGLUTIDE
     Dosage: 2 MG, QW
     Route: 058
  3. OZEMPIC [Suspect]
     Active Substance: SEMAGLUTIDE
     Route: 058

REACTIONS (8)
  - Hyperhidrosis [Unknown]
  - Irritability [Unknown]
  - Anxiety [Unknown]
  - Unevaluable event [Unknown]
  - Dehydration [Unknown]
  - Diabetes mellitus inadequate control [Unknown]
  - Drug effect less than expected [Unknown]
  - Off label use [Unknown]
